FAERS Safety Report 10077836 (Version 2)
Quarter: 2014Q2

REPORT INFORMATION
  Report Type: Spontaneous
  Country: US (occurrence: US)
  Receive Date: 20140414
  Receipt Date: 20140502
  Transmission Date: 20141212
  Serious: Yes (Hospitalization, Other)
  Sender: FDA-Public Use
  Company Number: US-UCBSA-117467

PATIENT
  Sex: Male
  Weight: 90.71 kg

DRUGS (4)
  1. VIMPAT [Suspect]
     Indication: CONVULSION
     Dates: start: 2013, end: 201401
  2. KEPPRA [Suspect]
     Dates: start: 2013, end: 201401
  3. TEGRETOL [Concomitant]
     Indication: CONVULSION
  4. DILANTIN [Concomitant]
     Dates: end: 201401

REACTIONS (10)
  - Pulmonary embolism [Not Recovered/Not Resolved]
  - Neuralgia [Not Recovered/Not Resolved]
  - Swelling [Not Recovered/Not Resolved]
  - Cognitive disorder [Not Recovered/Not Resolved]
  - Confusional state [Not Recovered/Not Resolved]
  - Somnolence [Not Recovered/Not Resolved]
  - Asthenia [Not Recovered/Not Resolved]
  - Aphasia [Not Recovered/Not Resolved]
  - Dysphemia [Not Recovered/Not Resolved]
  - Affect lability [Not Recovered/Not Resolved]
